FAERS Safety Report 12825483 (Version 4)
Quarter: 2016Q4

REPORT INFORMATION
  Report Type: Report from Study
  Country: DE (occurrence: DE)
  Receive Date: 20161007
  Receipt Date: 20161228
  Transmission Date: 20170207
  Serious: Yes (Hospitalization, Other)
  Sender: FDA-Public Use
  Company Number: DE-B.I. PHARMACEUTICALS,INC./RIDGEFIELD-2015-BI-61566BI

PATIENT
  Age: 61 Year
  Sex: Female
  Weight: 51 kg

DRUGS (23)
  1. PANTOZOL [Concomitant]
     Active Substance: PANTOPRAZOLE SODIUM
     Route: 048
     Dates: end: 20160602
  2. OXYCODON [Concomitant]
     Active Substance: OXYCODONE
     Route: 048
     Dates: start: 20160527, end: 20161130
  3. BETAIN [Concomitant]
     Indication: CHRONIC OBSTRUCTIVE PULMONARY DISEASE
     Route: 050
     Dates: end: 20160601
  4. OXYCODON [Concomitant]
     Active Substance: OXYCODONE
     Route: 048
     Dates: start: 20160524, end: 20160525
  5. BLINDED DABIGATRAN [Suspect]
     Active Substance: DABIGATRAN ETEXILATE
     Route: 048
     Dates: start: 20151103
  6. PANTOZOL [Concomitant]
     Active Substance: PANTOPRAZOLE SODIUM
     Indication: PROPHYLAXIS AGAINST GASTROINTESTINAL ULCER
     Route: 048
     Dates: end: 20160526
  7. NOVALGIN [Concomitant]
     Active Substance: METAMIZOLE SODIUM
     Indication: BACK PAIN
     Route: 048
     Dates: end: 20160603
  8. BUDECORT [Concomitant]
     Active Substance: BUDESONIDE
     Route: 050
     Dates: start: 20160618, end: 20160620
  9. ATORVASTATIN [Concomitant]
     Active Substance: ATORVASTATIN
     Indication: HYPERLIPIDAEMIA
     Route: 048
     Dates: end: 20161130
  10. SORTIS [Concomitant]
     Active Substance: ATORVASTATIN
     Indication: HYPERLIPIDAEMIA
     Route: 048
  11. METOPROLOL. [Concomitant]
     Active Substance: METOPROLOL
     Route: 048
     Dates: start: 20160715, end: 20161130
  12. BLINDED DABIGATRAN [Suspect]
     Active Substance: DABIGATRAN ETEXILATE
     Route: 048
     Dates: start: 20151024, end: 20151102
  13. BUDECORT [Concomitant]
     Active Substance: BUDESONIDE
     Indication: CHRONIC OBSTRUCTIVE PULMONARY DISEASE
     Dosage: SPRAY
     Route: 050
     Dates: end: 20160617
  14. BUDECORT [Concomitant]
     Active Substance: BUDESONIDE
     Route: 050
     Dates: start: 20160621, end: 20161130
  15. BIFITERAL [Concomitant]
     Active Substance: LACTULOSE
     Indication: CONSTIPATION PROPHYLAXIS
     Route: 048
     Dates: end: 20160526
  16. METOPROLOL. [Concomitant]
     Active Substance: METOPROLOL
     Route: 048
     Dates: start: 20160527
  17. RAMIPRIL. [Concomitant]
     Active Substance: RAMIPRIL
     Route: 048
  18. BLINDED DABIGATRAN [Suspect]
     Active Substance: DABIGATRAN ETEXILATE
     Indication: CEREBROVASCULAR ACCIDENT PROPHYLAXIS
     Route: 048
     Dates: start: 20151001, end: 20151023
  19. FRADIL [Concomitant]
     Indication: CHRONIC OBSTRUCTIVE PULMONARY DISEASE
     Route: 050
     Dates: end: 20160601
  20. METOPROLOL. [Concomitant]
     Active Substance: METOPROLOL
     Indication: HYPERTENSION
     Route: 048
  21. RAMIPRIL. [Concomitant]
     Active Substance: RAMIPRIL
     Indication: HYPERTENSION
     Route: 048
  22. OXYCODON [Concomitant]
     Active Substance: OXYCODONE
     Indication: BACK PAIN
     Route: 048
     Dates: end: 20160522
  23. CALCIUM VITA D [Concomitant]
     Indication: OSTEOPOROSIS
     Route: 048
     Dates: end: 20161130

REACTIONS (11)
  - Pneumonia [Recovered/Resolved]
  - Lumbar vertebral fracture [Not Recovered/Not Resolved]
  - Acute kidney injury [Recovered/Resolved]
  - Chronic obstructive pulmonary disease [Not Recovered/Not Resolved]
  - Fall [Recovered/Resolved]
  - Hypertensive crisis [Recovered/Resolved]
  - Hypertensive crisis [Recovered/Resolved]
  - Cystitis [Recovered/Resolved]
  - Dyspnoea [Not Recovered/Not Resolved]
  - Pneumonia [Not Recovered/Not Resolved]
  - Hypertensive crisis [Recovered/Resolved]

NARRATIVE: CASE EVENT DATE: 20151024
